FAERS Safety Report 6986125-5 (Version None)
Quarter: 2010Q3

REPORT INFORMATION
  Report Type: 
  Country: None (occurrence: None)
  Receive Date: 20100910
  Receipt Date: 20100825
  Transmission Date: 20110219
  Serious: Yes (Other)
  Sender: FDA-Public Use
  Company Number: DSA_43835_2010

PATIENT
  Sex: Male

DRUGS (4)
  1. ENALAPRIL MALEATE [Suspect]
     Indication: PRODUCT USED FOR UNKNOWN INDICATION
     Dosage: (DF ORAL)
     Route: 048
  2. MINIPRESS (MINIPRESS- PRAZOSIN HYDROCHLORIDE) (NOT SPECIFIED) [Suspect]
     Indication: BLOOD PRESSURE ABNORMAL
     Dosage: (1.5 MG IN THE MORNING), (2 MG IN THE MORNING)
  3. AVAPRO [Concomitant]
  4. DILTIAZEM HYDROCHLORIDE [Concomitant]

REACTIONS (3)
  - ANGIOEDEMA [None]
  - PULSE ABSENT [None]
  - SHOCK [None]
